FAERS Safety Report 24999880 (Version 1)
Quarter: 2025Q1

REPORT INFORMATION
  Report Type: Spontaneous
  Country: US (occurrence: US)
  Receive Date: 20250222
  Receipt Date: 20250222
  Transmission Date: 20250409
  Serious: No
  Sender: SANOFI AVENTIS
  Company Number: US-SA-2025SA049211

PATIENT
  Age: 63 Year
  Sex: Female
  Weight: 77.27 kg

DRUGS (10)
  1. DUPIXENT [Suspect]
     Active Substance: DUPILUMAB
     Indication: Dermatitis atopic
     Dosage: 300 MG, QOW
     Route: 058
     Dates: start: 202305
  2. SINGULAIR [Concomitant]
     Active Substance: MONTELUKAST SODIUM
  3. ROPINIROLE [Concomitant]
     Active Substance: ROPINIROLE
  4. SEROQUEL [Concomitant]
     Active Substance: QUETIAPINE FUMARATE
  5. WELLBUTRIN [Concomitant]
     Active Substance: BUPROPION HYDROCHLORIDE
  6. DULOXETINE [Concomitant]
     Active Substance: DULOXETINE
  7. XANAX [Concomitant]
     Active Substance: ALPRAZOLAM
  8. OZEMPIC [Concomitant]
     Active Substance: SEMAGLUTIDE
  9. TRIAMCINOLONE ACETONIDE [Concomitant]
     Active Substance: TRIAMCINOLONE ACETONIDE
  10. CLOBETASOL PROPIONATE [Concomitant]
     Active Substance: CLOBETASOL PROPIONATE

REACTIONS (2)
  - Pruritus [Not Recovered/Not Resolved]
  - Rash [Not Recovered/Not Resolved]
